FAERS Safety Report 7375353-5 (Version None)
Quarter: 2011Q1

REPORT INFORMATION
  Report Type: 
  Country: None (occurrence: None)
  Receive Date: 20110325
  Receipt Date: 20110302
  Transmission Date: 20110831
  Serious: No
  Sender: FDA-Public Use
  Company Number: US-B.I. PHARMACEUTICALS,INC./RIDGEFIELD-2010-BP-11738BP

PATIENT
  Age: 62 Year
  Sex: Female

DRUGS (2)
  1. SPIRIVA [Suspect]
     Indication: CHRONIC OBSTRUCTIVE PULMONARY DISEASE
     Dosage: 18 MCG
     Dates: start: 20100809
  2. ALBUTEROL [Concomitant]

REACTIONS (6)
  - DRY THROAT [None]
  - DRY MOUTH [None]
  - DYSPHONIA [None]
  - PRURITUS [None]
  - MUSCLE SPASMS [None]
  - ALOPECIA [None]
